FAERS Safety Report 4895171-7 (Version None)
Quarter: 2006Q1

REPORT INFORMATION
  Report Type: 
  Country: None (occurrence: None)
  Receive Date: 20060130
  Receipt Date: 20060118
  Transmission Date: 20060701
  Serious: Yes (Hospitalization)
  Sender: FDA-Public Use
  Company Number: US-BRISTOL-MYERS SQUIBB COMPANY-13251756

PATIENT
  Age: 73 Year
  Sex: Male
  Weight: 55 kg

DRUGS (8)
  1. CISPLATIN [Suspect]
     Indication: SQUAMOUS CELL CARCINOMA
     Route: 042
     Dates: start: 20020702, end: 20020708
  2. CISPLATIN [Suspect]
     Indication: METASTASES TO LIVER
     Route: 042
     Dates: start: 20020702, end: 20020708
  3. IRINOTECAN HCL [Suspect]
     Indication: SQUAMOUS CELL CARCINOMA
     Route: 042
     Dates: start: 20020702, end: 20020708
  4. IRINOTECAN HCL [Suspect]
     Indication: METASTASES TO LIVER
     Route: 042
     Dates: start: 20020702, end: 20020708
  5. MAGIC MOUTHWASH [Concomitant]
  6. PERCOCET [Concomitant]
  7. LOPERAMIDE [Concomitant]
  8. PROCRIT [Concomitant]

REACTIONS (11)
  - ABDOMINAL DISTENSION [None]
  - ASTHENIA [None]
  - DEHYDRATION [None]
  - GASTROINTESTINAL FISTULA [None]
  - HYPONATRAEMIA [None]
  - HYPOTENSION [None]
  - INFECTION [None]
  - NAUSEA [None]
  - NEUTROPENIA [None]
  - SMALL INTESTINAL OBSTRUCTION [None]
  - VOMITING [None]
